FAERS Safety Report 9556915 (Version 1)
Quarter: 2013Q3

REPORT INFORMATION
  Report Type: Spontaneous
  Country: US (occurrence: US)
  Receive Date: 20130926
  Receipt Date: 20130926
  Transmission Date: 20140515
  Serious: Yes (Hospitalization, Other)
  Sender: FDA-Public Use
  Company Number: US-PFIZER INC-2013274120

PATIENT
  Age: 78 Year
  Sex: Female

DRUGS (11)
  1. REVATIO [Suspect]
     Indication: PULMONARY HYPERTENSION
     Dosage: 20 MG, 3X/DAY
     Route: 048
     Dates: start: 2010
  2. TRACLEER [Concomitant]
     Dosage: 125 MG (TWO 62.5 MG TABLETS) , 2X/DAY
     Route: 048
  3. CELEXA [Concomitant]
     Dosage: 20 MG, DAILY
  4. ENALAPRIL [Concomitant]
     Dosage: 5 MG, 2X/DAY
     Route: 048
  5. LASIX [Concomitant]
     Dosage: 80 MG, DAILY
  6. GEMFIBROZIL [Concomitant]
     Dosage: 600 MG, 2X/DAY
  7. LEVOTHYROXINE [Concomitant]
     Dosage: 0.1 MG, DAILY
  8. METOPROLOL [Concomitant]
     Dosage: 100 MG, DAILY
  9. OMEPRAZOLE [Concomitant]
     Dosage: 20 MG, DAILY
  10. ACTOS [Concomitant]
     Dosage: 45 MG, DAILY
  11. ROSUVASTATIN [Concomitant]
     Dosage: 40 MG, DAILY
     Route: 048

REACTIONS (1)
  - Urinary tract infection [Recovering/Resolving]
